FAERS Safety Report 13122526 (Version 4)
Quarter: 2017Q2

REPORT INFORMATION
  Report Type: Report from Study
  Country: US (occurrence: US)
  Receive Date: 20170117
  Receipt Date: 20170418
  Transmission Date: 20170830
  Serious: Yes (Hospitalization, Other)
  Sender: FDA-Public Use
  Company Number: US-GILEAD-2016-0249795

PATIENT
  Age: 54 Year
  Sex: Female

DRUGS (1)
  1. IDELALISIB [Suspect]
     Active Substance: IDELALISIB
     Indication: B-CELL LYMPHOMA
     Dosage: 200 MG, UNK
     Route: 048
     Dates: start: 20161210

REACTIONS (6)
  - Systemic lupus erythematosus [Not Recovered/Not Resolved]
  - Fatigue [Not Recovered/Not Resolved]
  - Peripheral swelling [Unknown]
  - Catheter placement [Recovered/Resolved]
  - Skin lesion [Unknown]
  - Haematemesis [Unknown]

NARRATIVE: CASE EVENT DATE: 201612
